FAERS Safety Report 5879895-0 (Version None)
Quarter: 2008Q3

REPORT INFORMATION
  Report Type: 
  Country: None (occurrence: None)
  Receive Date: 20080911
  Receipt Date: 20080911
  Transmission Date: 20090109
  Serious: Yes (Other)
  Sender: FDA-Public Use
  Company Number: None

PATIENT
  Sex: Female
  Weight: 22.6799 kg

DRUGS (1)
  1. TRILEPTAL [Suspect]
     Indication: PETIT MAL EPILEPSY
     Dosage: 5ML 2X AM/PM ORAL SUSP
     Route: 048
     Dates: start: 20041001

REACTIONS (6)
  - ADVERSE DRUG REACTION [None]
  - BURNS SECOND DEGREE [None]
  - DISTURBANCE IN ATTENTION [None]
  - INSOMNIA [None]
  - SENSORY LOSS [None]
  - SPEECH DISORDER [None]
